FAERS Safety Report 17390682 (Version 14)
Quarter: 2025Q2

REPORT INFORMATION
  Report Type: Report from Study
  Country: US (occurrence: US)
  Receive Date: 20200207
  Receipt Date: 20250402
  Transmission Date: 20250717
  Serious: Yes (Hospitalization, Other)
  Sender: TAKEDA
  Company Number: US-SHIRE-US202004225

PATIENT
  Sex: Male
  Weight: 131.97 kg

DRUGS (38)
  1. .ALPHA.1-PROTEINASE INHIBITOR HUMAN [Suspect]
     Active Substance: .ALPHA.1-PROTEINASE INHIBITOR HUMAN
     Indication: Alpha-1 antitrypsin deficiency
     Dosage: 60 MILLIGRAM/KILOGRAM, 1/WEEK
     Dates: start: 20171019
  2. .ALPHA.1-PROTEINASE INHIBITOR HUMAN [Suspect]
     Active Substance: .ALPHA.1-PROTEINASE INHIBITOR HUMAN
  3. ACETAMINOPHEN [Concomitant]
     Active Substance: ACETAMINOPHEN
  4. LIDOCAINE [Concomitant]
     Active Substance: LIDOCAINE
  5. SODIUM CHLORIDE [Concomitant]
     Active Substance: SODIUM CHLORIDE
  6. EPINEPHRINE [Concomitant]
     Active Substance: EPINEPHRINE
  7. TRELEGY ELLIPTA [Concomitant]
     Active Substance: FLUTICASONE FUROATE\UMECLIDINIUM BROMIDE\VILANTEROL TRIFENATATE
  8. OXYGEN [Concomitant]
     Active Substance: OXYGEN
  9. GLYBURIDE [Concomitant]
     Active Substance: GLYBURIDE
  10. LISINOPRIL [Concomitant]
     Active Substance: LISINOPRIL
  11. ALBUTEROL SULFATE [Concomitant]
     Active Substance: ALBUTEROL SULFATE
  12. FUROSEMIDE [Concomitant]
     Active Substance: FUROSEMIDE
  13. THEOPHYLLINE ANHYDROUS [Concomitant]
     Active Substance: THEOPHYLLINE ANHYDROUS
  14. DIPHENHYDRAMINE [Concomitant]
     Active Substance: DIPHENHYDRAMINE
  15. LANTUS [Concomitant]
     Active Substance: INSULIN GLARGINE
  16. JANUVIA [Concomitant]
     Active Substance: SITAGLIPTIN PHOSPHATE
  17. Lmx [Concomitant]
  18. ZESTORETIC [Concomitant]
     Active Substance: HYDROCHLOROTHIAZIDE\LISINOPRIL
  19. LOSARTAN POTASSIUM [Concomitant]
     Active Substance: LOSARTAN POTASSIUM
  20. CEPHALEXIN [Concomitant]
     Active Substance: CEPHALEXIN
  21. CICLOPIROX [Concomitant]
     Active Substance: CICLOPIROX
  22. CLINDAMYCIN HYDROCHLORIDE [Concomitant]
     Active Substance: CLINDAMYCIN HYDROCHLORIDE
  23. FENOFIBRATE [Concomitant]
     Active Substance: FENOFIBRATE
  24. ASPIRIN [Concomitant]
     Active Substance: ASPIRIN
  25. BREZTRI [Concomitant]
     Active Substance: BUDESONIDE\FORMOTEROL\GLYCOPYRROLATE
  26. PREDNISONE [Concomitant]
     Active Substance: PREDNISONE
  27. MUCINEX [Concomitant]
     Active Substance: GUAIFENESIN
  28. IBUPROFEN [Concomitant]
     Active Substance: IBUPROFEN
  29. ALLEGRA ALLERGY [Concomitant]
     Active Substance: FEXOFENADINE HYDROCHLORIDE
  30. BASAGLAR [Concomitant]
     Active Substance: INSULIN GLARGINE
  31. FLONASE ALLERGY RELIEF [Concomitant]
     Active Substance: FLUTICASONE PROPIONATE
  32. VITAMIN B [Concomitant]
     Active Substance: VITAMIN B
  33. OZEMPIC [Concomitant]
     Active Substance: SEMAGLUTIDE
  34. PRILOSEC [Concomitant]
     Active Substance: OMEPRAZOLE MAGNESIUM
  35. DIPHENHYDRAMINE HYDROCHLORIDE [Concomitant]
     Active Substance: DIPHENHYDRAMINE HYDROCHLORIDE
  36. LEVOFLOXACIN [Concomitant]
     Active Substance: LEVOFLOXACIN
  37. MINERALS\VITAMINS [Concomitant]
     Active Substance: MINERALS\VITAMINS
  38. BENZONATATE [Concomitant]
     Active Substance: BENZONATATE

REACTIONS (15)
  - Syncope [Unknown]
  - Pneumonia [Unknown]
  - COVID-19 [Unknown]
  - Sepsis [Unknown]
  - Chest pain [Unknown]
  - Dyspnoea [Unknown]
  - Erythema [Unknown]
  - Influenza like illness [Unknown]
  - Localised infection [Unknown]
  - Productive cough [Unknown]
  - Product dose omission issue [Unknown]
  - Respiratory tract infection [Unknown]
  - Insurance issue [Unknown]
  - Product use issue [Unknown]
  - Back pain [Unknown]
